FAERS Safety Report 9358944 (Version 1)
Quarter: 2013Q2

REPORT INFORMATION
  Report Type: Spontaneous
  Country: TR (occurrence: None)
  Receive Date: 20130617
  Receipt Date: 20130617
  Transmission Date: 20140414
  Serious: Yes (Hospitalization, Other)
  Sender: FDA-Public Use
  Company Number: FK201301990

PATIENT
  Age: 31 Year
  Sex: Female

DRUGS (1)
  1. VALPROATE [Suspect]
     Indication: PRODUCT USED FOR UNKNOWN INDICATION
     Route: 048

REACTIONS (8)
  - Metabolic acidosis [None]
  - Disorientation [None]
  - Thrombocytopenia [None]
  - Overdose [None]
  - Loss of consciousness [None]
  - Agitation [None]
  - Toxicity to various agents [None]
  - Haemodialysis [None]
